FAERS Safety Report 18921964 (Version 1)
Quarter: 2021Q1

REPORT INFORMATION
  Report Type: Spontaneous
  Country: US (occurrence: US)
  Receive Date: 20210220
  Receipt Date: 20210220
  Transmission Date: 20210420
  Serious: No
  Sender: FDA-Public Use
  Company Number: None

PATIENT
  Age: 32 Year
  Sex: Female
  Weight: 87.3 kg

DRUGS (2)
  1. COPPER IUD [Suspect]
     Active Substance: COPPER
     Route: 067
     Dates: start: 20200417, end: 20210121
  2. OMEPRAZOLE. [Concomitant]
     Active Substance: OMEPRAZOLE

REACTIONS (6)
  - Headache [None]
  - Complication associated with device [None]
  - Uterine spasm [None]
  - Vaginal haemorrhage [None]
  - Device dislocation [None]
  - Embedded device [None]

NARRATIVE: CASE EVENT DATE: 20210121
